FAERS Safety Report 12552838 (Version 1)
Quarter: 2016Q3

REPORT INFORMATION
  Report Type: Spontaneous
  Country: US (occurrence: None)
  Receive Date: 20160712
  Receipt Date: 20160712
  Transmission Date: 20161109
  Serious: Yes (Other)
  Sender: FDA-Public Use
  Company Number: None

PATIENT
  Age: 83 Year
  Sex: Female
  Weight: 76 kg

DRUGS (21)
  1. CHLORHEXIDINE [Concomitant]
     Active Substance: CHLORHEXIDINE
  2. METOPROLOL TARTRATE. [Concomitant]
     Active Substance: METOPROLOL TARTRATE
  3. NICARDIPINE [Concomitant]
     Active Substance: NICARDIPINE
  4. ETOMIDATE. [Concomitant]
     Active Substance: ETOMIDATE
  5. DOCUSATE [Suspect]
     Active Substance: DOCUSATE
     Route: 048
     Dates: start: 20160202, end: 20160207
  6. LORAZEPAM. [Concomitant]
     Active Substance: LORAZEPAM
  7. FUROSEMIDE. [Concomitant]
     Active Substance: FUROSEMIDE
  8. HYDRALAZINE [Concomitant]
     Active Substance: HYDRALAZINE HYDROCHLORIDE
  9. POTASSIUM CHLORIDE. [Concomitant]
     Active Substance: POTASSIUM CHLORIDE
  10. PROPOFOL. [Concomitant]
     Active Substance: PROPOFOL
  11. MAGNESIUM SULFATE. [Concomitant]
     Active Substance: MAGNESIUM SULFATE
  12. FAMOTIDINE. [Concomitant]
     Active Substance: FAMOTIDINE
  13. INSULIN GLARGINE [Concomitant]
     Active Substance: INSULIN GLARGINE
  14. LISINOPRIL. [Concomitant]
     Active Substance: LISINOPRIL
  15. ROSUVASTATIN. [Concomitant]
     Active Substance: ROSUVASTATIN
  16. NACL [Concomitant]
     Active Substance: SODIUM CHLORIDE
  17. DEXTROSE. [Concomitant]
     Active Substance: DEXTROSE
  18. HEPARIN [Concomitant]
     Active Substance: HEPARIN SODIUM
  19. ALBUMIN [Concomitant]
     Active Substance: ALBUMIN HUMAN
  20. INSULIN LISPRO [Concomitant]
     Active Substance: INSULIN LISPRO
  21. LABETALOL [Concomitant]
     Active Substance: LABETALOL\LABETALOL HYDROCHLORIDE

REACTIONS (5)
  - Ischaemic hepatitis [None]
  - General physical health deterioration [None]
  - Burkholderia test positive [None]
  - Shock [None]
  - Hypotension [None]

NARRATIVE: CASE EVENT DATE: 20160207
